FAERS Safety Report 17955074 (Version 1)
Quarter: 2020Q2

REPORT INFORMATION
  Report Type: Spontaneous
  Country: US (occurrence: US)
  Receive Date: 20200628
  Receipt Date: 20200628
  Transmission Date: 20200714
  Serious: Yes (Other)
  Sender: FDA-Public Use
  Company Number: None

PATIENT
  Age: 79 Year
  Sex: Female
  Weight: 61.3 kg

DRUGS (2)
  1. WARFARIN [Suspect]
     Active Substance: WARFARIN
  2. REMDESIVIR. [Suspect]
     Active Substance: REMDESIVIR

REACTIONS (2)
  - International normalised ratio increased [None]
  - Therapy change [None]

NARRATIVE: CASE EVENT DATE: 20200614
